FAERS Safety Report 21485624 (Version 1)
Quarter: 2022Q4

REPORT INFORMATION
  Report Type: Spontaneous
  Country: US (occurrence: US)
  Receive Date: 20221020
  Receipt Date: 20221020
  Transmission Date: 20230113
  Serious: No
  Sender: FDA-Public Use
  Company Number: US-NOVARTISTESTPH-NVSC2022US236323

PATIENT
  Age: 60 Year
  Sex: Female

DRUGS (4)
  1. VIJOICE [Suspect]
     Active Substance: ALPELISIB
     Indication: PIK3CA-activated mutation
     Dosage: UNK
     Route: 065
  2. VIJOICE [Suspect]
     Active Substance: ALPELISIB
     Indication: Non-small cell lung cancer
  3. TAGRISSO [Suspect]
     Active Substance: OSIMERTINIB
     Indication: PIK3CA-activated mutation
     Dosage: UNK
     Route: 065
  4. TAGRISSO [Suspect]
     Active Substance: OSIMERTINIB
     Indication: Non-small cell lung cancer

REACTIONS (2)
  - Oral disorder [Unknown]
  - Blister [Unknown]
